FAERS Safety Report 6844552-0 (Version None)
Quarter: 2010Q3

REPORT INFORMATION
  Report Type: 
  Country: None (occurrence: None)
  Receive Date: 20100715
  Receipt Date: 20100702
  Transmission Date: 20110219
  Serious: Yes (Other)
  Sender: FDA-Public Use
  Company Number: PHHY2010BR43690

PATIENT
  Sex: Female

DRUGS (3)
  1. HYDRALAZINE HCL [Suspect]
     Dosage: 25 MG, QID
  2. DIOVAN [Suspect]
  3. VISKEN [Suspect]
     Dosage: 10 MG, QID

REACTIONS (2)
  - DRUG EXPOSURE DURING PREGNANCY [None]
  - HIGH RISK PREGNANCY [None]
